FAERS Safety Report 7115113-3 (Version None)
Quarter: 2010Q4

REPORT INFORMATION
  Report Type: 
  Country: None (occurrence: None)
  Receive Date: 20101116
  Receipt Date: 20101116
  Transmission Date: 20110411
  Serious: Yes (Hospitalization)
  Sender: FDA-Public Use
  Company Number: None

PATIENT
  Age: 66 Year
  Sex: Male
  Weight: 99 kg

DRUGS (2)
  1. HEPARIN [Suspect]
     Indication: ATRIAL FIBRILLATION
     Dates: start: 20101017, end: 20101108
  2. MICAFUNGIN [Suspect]
     Indication: FUNGAL INFECTION
     Dates: start: 20101105, end: 20101110

REACTIONS (1)
  - THROMBOCYTOPENIA [None]
